FAERS Safety Report 25583946 (Version 1)
Quarter: 2025Q3

REPORT INFORMATION
  Report Type: Spontaneous
  Country: CA (occurrence: CA)
  Receive Date: 20250721
  Receipt Date: 20250721
  Transmission Date: 20251021
  Serious: Yes (Other)
  Sender: GLAXOSMITHKLINE
  Company Number: CA-GSK-CA2025GSK091726

PATIENT
  Sex: Female

DRUGS (1)
  1. WELLBUTRIN XL [Suspect]
     Active Substance: BUPROPION HYDROCHLORIDE
     Indication: Craniocerebral injury
     Route: 065

REACTIONS (5)
  - Craniocerebral injury [Unknown]
  - Symptom recurrence [Unknown]
  - Insomnia [Recovering/Resolving]
  - Product use in unapproved indication [Unknown]
  - Drug effective for unapproved indication [Unknown]
